FAERS Safety Report 6557900-6 (Version None)
Quarter: 2010Q1

REPORT INFORMATION
  Report Type: 
  Country: None (occurrence: None)
  Receive Date: 20100129
  Receipt Date: 20100121
  Transmission Date: 20100710
  Serious: Yes (Other)
  Sender: FDA-Public Use
  Company Number: US-ROCHE-497554

PATIENT
  Age: 51 Year
  Sex: Female
  Weight: 56.7 kg

DRUGS (3)
  1. BONIVA [Suspect]
     Indication: DRUG USE FOR UNKNOWN INDICATION
     Route: 048
     Dates: start: 20070201
  2. BONIVA [Suspect]
     Dosage: INDICATION: OSTEOPENIA, STRENGTH: 150 MG
     Route: 048
     Dates: start: 20080301
  3. BONIVA [Suspect]
     Dosage: START DATE: MID-LATE 2008
     Route: 048
     Dates: start: 20080601, end: 20091101

REACTIONS (8)
  - ABDOMINAL PAIN UPPER [None]
  - ALOPECIA [None]
  - ARTHRALGIA [None]
  - ARTHROPATHY [None]
  - JOINT STIFFNESS [None]
  - RASH [None]
  - RASH PAPULAR [None]
  - SHOULDER OPERATION [None]
